FAERS Safety Report 17134700 (Version 1)
Quarter: 2019Q4

REPORT INFORMATION
  Report Type: Report from Study
  Country: FR (occurrence: FR)
  Receive Date: 20191210
  Receipt Date: 20191210
  Transmission Date: 20200122
  Serious: Yes (Other)
  Sender: FDA-Public Use
  Company Number: FR-JNJFOC-20181221297

PATIENT

DRUGS (2)
  1. STELARA [Suspect]
     Active Substance: USTEKINUMAB
     Indication: PSORIASIS
     Route: 058
  2. REMICADE [Suspect]
     Active Substance: INFLIXIMAB
     Indication: PSORIASIS
     Route: 042

REACTIONS (9)
  - Respiratory distress [Unknown]
  - Erysipelas [Unknown]
  - Off label use [Unknown]
  - Drug ineffective [Unknown]
  - Infectious mononucleosis [Unknown]
  - Ophthalmic herpes zoster [Unknown]
  - Appendicitis [Unknown]
  - Inappropriate schedule of product administration [Unknown]
  - Mastoiditis [Unknown]
